FAERS Safety Report 23267834 (Version 1)
Quarter: 2023Q4

REPORT INFORMATION
  Report Type: Spontaneous
  Country: US (occurrence: None)
  Receive Date: 20231205
  Receipt Date: 20231205
  Transmission Date: 20240109
  Serious: Yes (Hospitalization)
  Sender: FDA-Public Use
  Company Number: None

PATIENT
  Age: 39 Year
  Sex: Male
  Weight: 82.3 kg

DRUGS (8)
  1. CRIZOTINIB [Suspect]
     Active Substance: CRIZOTINIB
     Indication: Malignant melanoma
     Dosage: 200 MG TWICE A DA ORAL?
     Route: 048
     Dates: start: 20231012, end: 20231128
  2. DAROVASERTIB [Suspect]
     Active Substance: DAROVASERTIB
     Indication: Malignant melanoma
     Dosage: 300 MG TWICE A DAY ORAL?
     Route: 048
     Dates: start: 20231005, end: 20231128
  3. MONODOX [Concomitant]
     Active Substance: DOXYCYCLINE
     Dates: start: 20230921
  4. ULTRAM [Concomitant]
     Active Substance: TRAMADOL HYDROCHLORIDE
     Dates: start: 20231006
  5. ZYPREXA [Concomitant]
     Active Substance: OLANZAPINE
  6. LASIX [Concomitant]
     Active Substance: FUROSEMIDE
     Dates: start: 20231102
  7. ALDACTONE [Concomitant]
     Active Substance: SPIRONOLACTONE
     Dates: start: 20231110
  8. CORTEF [Concomitant]
     Active Substance: HYDROCORTISONE
     Dates: start: 20230718

REACTIONS (6)
  - Ascites [None]
  - Asthenia [None]
  - Diarrhoea [None]
  - Malignant melanoma [None]
  - Disease progression [None]
  - Adverse drug reaction [None]

NARRATIVE: CASE EVENT DATE: 20231128
